FAERS Safety Report 5708608-8 (Version None)
Quarter: 2008Q2

REPORT INFORMATION
  Report Type: 
  Country: None (occurrence: None)
  Receive Date: 20080417
  Receipt Date: 20080409
  Transmission Date: 20081010
  Serious: Yes (Other)
  Sender: FDA-Public Use
  Company Number: US-WYE-H03528508

PATIENT
  Age: 64 Year
  Sex: Female

DRUGS (4)
  1. RAPAMUNE [Suspect]
     Dosage: UNKNOWN
     Dates: start: 20040101, end: 20050101
  2. RAPAMUNE [Suspect]
     Dosage: UNKNOWN
     Dates: start: 20070201, end: 20080101
  3. MYCOPHENOLATE MOFETIL [Concomitant]
  4. TACROLIMUS [Concomitant]

REACTIONS (4)
  - FOCAL SEGMENTAL GLOMERULOSCLEROSIS [None]
  - HAEMOLYTIC URAEMIC SYNDROME [None]
  - MALIGNANT MELANOMA [None]
  - THROMBOTIC THROMBOCYTOPENIC PURPURA [None]
